FAERS Safety Report 22009339 (Version 1)
Quarter: 2023Q1

REPORT INFORMATION
  Report Type: Spontaneous
  Country: JP (occurrence: None)
  Receive Date: 20230220
  Receipt Date: 20230220
  Transmission Date: 20230418
  Serious: Yes (Hospitalization)
  Sender: FDA-Public Use
  Company Number: JP-Merck Healthcare KGaA-9384605

PATIENT
  Age: 58 Year
  Sex: Female

DRUGS (3)
  1. METGLUCO [Suspect]
     Active Substance: METFORMIN HYDROCHLORIDE
     Indication: Diabetes mellitus
     Route: 048
  2. METGLUCO [Suspect]
     Active Substance: METFORMIN HYDROCHLORIDE
     Route: 048
     Dates: start: 202211, end: 202212
  3. XULTOPHY 100/3.6 [Suspect]
     Active Substance: INSULIN DEGLUDEC\LIRAGLUTIDE
     Indication: Product used for unknown indication
     Dosage: 9 DOSES OF INSULIN DEGLUDEC AND LIRAGLUTIDE IN THE MORNING.
     Dates: start: 202211, end: 202212

REACTIONS (5)
  - Glycosylated haemoglobin increased [Recovering/Resolving]
  - Urine ketone body present [Unknown]
  - Blood glucose increased [Recovering/Resolving]
  - Dyspnoea exertional [Unknown]
  - Nausea [Recovered/Resolved]

NARRATIVE: CASE EVENT DATE: 20221101
